FAERS Safety Report 4593677-1 (Version None)
Quarter: 2005Q1

REPORT INFORMATION
  Report Type: 
  Country: None (occurrence: None)
  Receive Date: 20050224
  Receipt Date: 20041101
  Transmission Date: 20050727
  Serious: No
  Sender: FDA-Public Use
  Company Number: US-BRISTOL-MYERS SQUIBB COMPANY-12752689

PATIENT
  Age: 25 Year
  Sex: Male
  Weight: 77 kg

DRUGS (1)
  1. EXCEDRIN (MIGRAINE) [Suspect]
     Indication: TOOTHACHE
     Route: 048
     Dates: start: 20041031, end: 20041031

REACTIONS (1)
  - NAUSEA [None]
